FAERS Safety Report 4303187-4 (Version None)
Quarter: 2004Q1

REPORT INFORMATION
  Report Type: 
  Country: None (occurrence: None)
  Receive Date: 20040126
  Receipt Date: 20030926
  Transmission Date: 20041129
  Serious: No
  Sender: FDA-Public Use
  Company Number: USA030948396

PATIENT
  Sex: Male

DRUGS (2)
  1. PROZAC [Suspect]
  2. STRATTERA [Suspect]
     Dosage: 60 MG
     Dates: start: 20030901

REACTIONS (4)
  - FATIGUE [None]
  - IRRITABILITY [None]
  - SOMNOLENCE [None]
  - THINKING ABNORMAL [None]
